FAERS Safety Report 4992896-X (Version None)
Quarter: 2006Q1

REPORT INFORMATION
  Report Type: 
  Country: None (occurrence: None)
  Receive Date: 20060315
  Receipt Date: 20060208
  Transmission Date: 20060701
  Serious: No
  Sender: FDA-Public Use
  Company Number: 2006RL000038

PATIENT
  Age: 38 Year
  Sex: Male
  Weight: 98.8842 kg

DRUGS (6)
  1. OMACOR [Suspect]
     Indication: BLOOD TRIGLYCERIDES INCREASED
     Dosage: 4 GM;QD;PO
     Route: 048
     Dates: start: 20060101
  2. DIOVAN [Concomitant]
  3. TOPROL-XL [Concomitant]
  4. ZYLOPRIM [Concomitant]
  5. NEXIUM [Concomitant]
  6. MULTIVITAMIN [Concomitant]

REACTIONS (2)
  - DYSGEUSIA [None]
  - ERUCTATION [None]
